FAERS Safety Report 4675836-2 (Version None)
Quarter: 2005Q2

REPORT INFORMATION
  Report Type: 
  Country: None (occurrence: None)
  Receive Date: 20050527
  Receipt Date: 20050523
  Transmission Date: 20051028
  Serious: Yes (Life-Threatening, Hospitalization)
  Sender: FDA-Public Use
  Company Number: RU-BOEHRINGER INGELHEIM PHARMACEUTICALS, INC.-2005-BP-08641YA

PATIENT
  Sex: Male

DRUGS (2)
  1. TAMSULOSIN CAPSULES [Suspect]
     Indication: BENIGN PROSTATIC HYPERPLASIA
     Route: 048
     Dates: start: 20041122, end: 20050501
  2. ENALAPRIL MALEATE [Concomitant]
     Indication: ESSENTIAL HYPERTENSION
     Dates: start: 20050301

REACTIONS (1)
  - MYOCARDIAL INFARCTION [None]
